FAERS Safety Report 8996444 (Version 1)
Quarter: 2013Q1

REPORT INFORMATION
  Report Type: Spontaneous
  Country: US (occurrence: US)
  Receive Date: 20130104
  Receipt Date: 20130104
  Transmission Date: 20140127
  Serious: Yes (Hospitalization)
  Sender: FDA-Public Use
  Company Number: US-BIOGENIDEC-2012BI054380

PATIENT
  Age: 52 Year
  Sex: Female

DRUGS (4)
  1. AVONEX [Suspect]
     Indication: MULTIPLE SCLEROSIS
     Route: 030
  2. AVONEX [Suspect]
     Indication: MULTIPLE SCLEROSIS
     Route: 030
     Dates: start: 20000501
  3. AVONEX [Suspect]
     Indication: MULTIPLE SCLEROSIS
     Route: 030
     Dates: start: 20000517
  4. TYLENOL [Concomitant]
     Indication: PREMEDICATION

REACTIONS (10)
  - Chest pain [Recovered/Resolved]
  - Syncope [Recovered/Resolved]
  - Carotid artery aneurysm [Unknown]
  - Electrocardiogram QT interval abnormal [Unknown]
  - Blood sodium decreased [Unknown]
  - Multiple sclerosis relapse [Recovered/Resolved]
  - Tremor [Not Recovered/Not Resolved]
  - Pain in extremity [Not Recovered/Not Resolved]
  - Influenza like illness [Unknown]
  - Headache [Recovered/Resolved]
